FAERS Safety Report 9423509 (Version 2)
Quarter: 2014Q1

REPORT INFORMATION
  Report Type: Spontaneous
  Country: GB (occurrence: GB)
  Receive Date: 20130726
  Receipt Date: 20140203
  Transmission Date: 20141002
  Serious: No
  Sender: FDA-Public Use
  Company Number: GB-ELI_LILLY_AND_COMPANY-GB201307006323

PATIENT
  Age: 63 Year
  Sex: Female
  Weight: 75 kg

DRUGS (7)
  1. CYMBALTA [Suspect]
     Indication: DEPRESSION
     Dosage: 60 MG, QD
     Route: 048
     Dates: start: 20090225
  2. CYMBALTA [Suspect]
     Indication: FIBROMYALGIA
     Dosage: 30 MG, QD
     Route: 048
     Dates: start: 20130716
  3. CYMBALTA [Suspect]
     Dosage: 60 MG, QD
     Route: 048
     Dates: start: 20130927
  4. METOCLOPRAMIDE [Concomitant]
     Indication: NAUSEA
     Dosage: UNK, UNKNOWN
     Route: 065
  5. TRAMADOL [Concomitant]
     Indication: BREAST PAIN
     Dosage: UNK, UNKNOWN
     Route: 065
  6. ZOLMITRIPTAN [Concomitant]
     Indication: MIGRAINE
     Dosage: UNK, UNKNOWN
     Route: 065
  7. VALIUM                             /00017001/ [Concomitant]
     Indication: ANXIETY
     Dosage: UNK, UNKNOWN
     Route: 065

REACTIONS (2)
  - Hepatic steatosis [Unknown]
  - Gastric ulcer [Recovered/Resolved]
